FAERS Safety Report 8770487 (Version 2)
Quarter: 2013Q4

REPORT INFORMATION
  Report Type: Spontaneous
  Country: US (occurrence: US)
  Receive Date: 20120906
  Receipt Date: 20131101
  Transmission Date: 20140711
  Serious: No
  Sender: FDA-Public Use
  Company Number: US-009507513-1208USA011501

PATIENT
  Age: 58 Year
  Sex: Male

DRUGS (2)
  1. PEGINTRON [Suspect]
     Indication: HEPATITIS C
     Dosage: UNK
     Dates: start: 20120821
  2. REBETOL [Suspect]
     Indication: HEPATITIS C
     Dosage: UNK
     Route: 048
     Dates: start: 20120821

REACTIONS (5)
  - Bone pain [Unknown]
  - Fatigue [Unknown]
  - Pain [Unknown]
  - Skin exfoliation [Unknown]
  - Dysuria [Unknown]
